FAERS Safety Report 14184250 (Version 1)
Quarter: 2017Q4

REPORT INFORMATION
  Report Type: Spontaneous
  Country: JP (occurrence: JP)
  Receive Date: 20171113
  Receipt Date: 20171113
  Transmission Date: 20180321
  Serious: Yes (Life-Threatening, Hospitalization, Other)
  Sender: FDA-Public Use
  Company Number: JP-SA-2017SA192480

PATIENT
  Age: 54 Year
  Sex: Female

DRUGS (8)
  1. FOLINIC ACID [Suspect]
     Active Substance: LEUCOVORIN
     Indication: RECTAL CANCER METASTATIC
     Route: 065
  2. AVASTIN [Suspect]
     Active Substance: BEVACIZUMAB
     Indication: RECTAL CANCER METASTATIC
     Route: 042
  3. ELPLAT [Suspect]
     Active Substance: OXALIPLATIN
     Indication: RECTAL CANCER METASTATIC
     Route: 041
  4. IRINOTECAN HYDROCHLORIDE. [Suspect]
     Active Substance: IRINOTECAN HYDROCHLORIDE
     Indication: RECTAL CANCER METASTATIC
     Route: 041
  5. FLUOROURACIL. [Suspect]
     Active Substance: FLUOROURACIL
     Indication: RECTAL CANCER METASTATIC
     Route: 041
  6. ELPLAT [Suspect]
     Active Substance: OXALIPLATIN
     Indication: RECTAL CANCER METASTATIC
     Route: 041
  7. IRINOTECAN HYDROCHLORIDE. [Suspect]
     Active Substance: IRINOTECAN HYDROCHLORIDE
     Indication: RECTAL CANCER METASTATIC
     Route: 041
  8. CALCIUM LEVOFOLINATE [Suspect]
     Active Substance: LEVOLEUCOVORIN CALCIUM
     Indication: RECTAL CANCER METASTATIC
     Route: 041

REACTIONS (10)
  - Hyperventilation [Recovered/Resolved]
  - Hypocapnia [Recovered/Resolved]
  - Ventricular fibrillation [Recovered/Resolved]
  - Malaise [Unknown]
  - Alopecia [Unknown]
  - Seizure [Unknown]
  - Neuropathy peripheral [Unknown]
  - Dyspnoea [Recovered/Resolved]
  - Diarrhoea [Unknown]
  - Anxiety [Unknown]
